FAERS Safety Report 12171867 (Version 2)
Quarter: 2016Q1

REPORT INFORMATION
  Report Type: Spontaneous
  Country: US (occurrence: US)
  Receive Date: 20160311
  Receipt Date: 20160316
  Transmission Date: 20160526
  Serious: No
  Sender: FDA-Public Use
  Company Number: US-BAXALTA-2016BLT001543

PATIENT
  Age: 10 Year
  Sex: Male
  Weight: 55.78 kg

DRUGS (3)
  1. GAMMAGARD LIQUID [Suspect]
     Active Substance: HUMAN IMMUNOGLOBULIN G
     Indication: OFF LABEL USE
  2. GAMMAGARD LIQUID [Suspect]
     Active Substance: HUMAN IMMUNOGLOBULIN G
     Indication: MYASTHENIA GRAVIS
     Dosage: 30 G, EVERY 6 WK, SECOND INFUSION
     Route: 042
  3. GAMMAGARD LIQUID [Suspect]
     Active Substance: HUMAN IMMUNOGLOBULIN G
     Indication: AUTOIMMUNE THYROIDITIS
     Dosage: 30 G, EVERY 6 WK, FIRST INFUSION
     Route: 042
     Dates: start: 201510

REACTIONS (6)
  - Headache [Recovered/Resolved]
  - Infusion site warmth [Unknown]
  - Infusion site pain [Unknown]
  - Conversion disorder [Unknown]
  - Infusion site erythema [Unknown]
  - Infusion site swelling [Unknown]
